FAERS Safety Report 18491995 (Version 2)
Quarter: 2020Q4

REPORT INFORMATION
  Report Type: Spontaneous
  Country: US (occurrence: US)
  Receive Date: 20201111
  Receipt Date: 20201116
  Transmission Date: 20210114
  Serious: Yes (Disabling)
  Sender: FDA-Public Use
  Company Number: US-TEVA-2020-US-1847754

PATIENT
  Age: 62 Year
  Sex: Female

DRUGS (7)
  1. DOCETAXEL. [Suspect]
     Active Substance: DOCETAXEL
     Indication: BREAST CANCER FEMALE
     Dosage: DOSAGE: 140MILLIGRAMS, NUMBER OF CYCLES: 06, EVERY THREE WEEKS
     Route: 065
     Dates: start: 20150623, end: 20151008
  2. TRASTUZUMAB. [Concomitant]
     Active Substance: TRASTUZUMAB
  3. NEXIUM [Concomitant]
     Active Substance: ESOMEPRAZOLE MAGNESIUM
     Dates: start: 1985
  4. LETROZOLE. [Concomitant]
     Active Substance: LETROZOLE
     Dates: start: 202008
  5. TAXOTERE [Suspect]
     Active Substance: DOCETAXEL
     Indication: BREAST CANCER FEMALE
     Dosage: DOSAGE: 140MILLIGRAMS, NUMBER OF CYCLES: 06, EVERY THREE WEEKS
     Route: 065
     Dates: start: 20150623, end: 20151008
  6. PARAPLATIN [Concomitant]
     Active Substance: CARBOPLATIN
     Indication: BREAST CANCER FEMALE
     Dosage: DOSAGE: CYCLES, NUMBER OF CYCLES: 06, EVERY THREE WEEKS
     Dates: start: 20150623, end: 20151008
  7. LEVOTHYROXINE. [Concomitant]
     Active Substance: LEVOTHYROXINE
     Dates: start: 1990

REACTIONS (4)
  - Hair texture abnormal [Not Recovered/Not Resolved]
  - Alopecia [Not Recovered/Not Resolved]
  - Madarosis [Not Recovered/Not Resolved]
  - Hair colour changes [Not Recovered/Not Resolved]

NARRATIVE: CASE EVENT DATE: 201507
